FAERS Safety Report 5993308-X (Version None)
Quarter: 2008Q4

REPORT INFORMATION
  Report Type: 
  Country: None (occurrence: None)
  Receive Date: 20081210
  Receipt Date: 20081210
  Transmission Date: 20090506
  Serious: Yes (Life-Threatening, Hospitalization)
  Sender: FDA-Public Use
  Company Number: None

PATIENT
  Age: 74 Year
  Sex: Female
  Weight: 65.7716 kg

DRUGS (1)
  1. CYMBALTA [Suspect]
     Indication: DEPRESSION
     Dosage: 90MG ONCE PER DAY PO
     Route: 048
     Dates: start: 20070514, end: 20081209

REACTIONS (7)
  - BALANCE DISORDER [None]
  - CERVICAL VERTEBRAL FRACTURE [None]
  - DELIRIUM [None]
  - FALL [None]
  - HYPERTENSION [None]
  - MITRAL VALVE PROLAPSE [None]
  - QUADRIPLEGIA [None]
